FAERS Safety Report 6308425-4 (Version None)
Quarter: 2009Q3

REPORT INFORMATION
  Report Type: 
  Country: None (occurrence: None)
  Receive Date: 20090813
  Receipt Date: 20090805
  Transmission Date: 20100115
  Serious: No
  Sender: FDA-Public Use
  Company Number: US-B.I. PHARMACEUTICALS,INC./RIDGEFIELD-2009-BP-09271BP

PATIENT
  Sex: Female

DRUGS (3)
  1. SPIRIVA [Suspect]
     Indication: ASTHMA
     Dosage: 18 MCG
     Route: 055
     Dates: start: 20090201
  2. SPIRIVA [Suspect]
     Indication: BRONCHITIS CHRONIC
  3. COMBIVENT [Concomitant]
     Indication: ASTHMA
     Dosage: 1 PUF
     Route: 055
     Dates: start: 20081101

REACTIONS (2)
  - NASAL CONGESTION [None]
  - OROPHARYNGEAL PAIN [None]
